FAERS Safety Report 14068586 (Version 1)
Quarter: 2017Q4

REPORT INFORMATION
  Report Type: Spontaneous
  Country: US (occurrence: US)
  Receive Date: 20171010
  Receipt Date: 20171010
  Transmission Date: 20180321
  Serious: Yes (Other)
  Sender: FDA-Public Use
  Company Number: None

PATIENT
  Age: 73 Year
  Sex: Male
  Weight: 89 kg

DRUGS (1)
  1. NAFCILLIN [Suspect]
     Active Substance: NAFCILLIN\NAFCILLIN SODIUM
     Indication: ENDOCARDITIS
     Dosage: ?          OTHER FREQUENCY:EVERY 4 HOURS;?
     Route: 042
     Dates: start: 20170906, end: 20170914

REACTIONS (2)
  - Therapy change [None]
  - Hypokalaemia [None]

NARRATIVE: CASE EVENT DATE: 20170812
